FAERS Safety Report 14612735 (Version 3)
Quarter: 2018Q2

REPORT INFORMATION
  Report Type: Spontaneous
  Country: FR (occurrence: FR)
  Receive Date: 20180308
  Receipt Date: 20180404
  Transmission Date: 20180711
  Serious: Yes (Other)
  Sender: FDA-Public Use
  Company Number: FR-009507513-1803FRA002585

PATIENT
  Age: 28 Year
  Sex: Male

DRUGS (13)
  1. EBASTINE [Suspect]
     Active Substance: EBASTINE
     Indication: ASTHMA
     Dosage: 10 MG, ONCE A DAY
  2. PREDNISONE. [Suspect]
     Active Substance: PREDNISONE
     Indication: HEADACHE
     Dosage: UNK
  3. BECLOMETHASONE DIPROPIONATE [Concomitant]
     Active Substance: BECLOMETHASONE DIPROPIONATE
     Indication: ASTHMA
     Dosage: 800 MCG, ONCE A DAY
  4. PREDNISONE. [Suspect]
     Active Substance: PREDNISONE
     Indication: ANOSMIA
  5. FLUTICASONE. [Concomitant]
     Active Substance: FLUTICASONE
     Dosage: 55 MCG AND 75MG, ONCE A DAY
     Route: 055
  6. FLUTICASONE. [Concomitant]
     Active Substance: FLUTICASONE
     Dosage: DOSE: 55G/DAY
     Route: 045
  7. FORMOTEROL FUMARATE [Concomitant]
     Active Substance: FORMOTEROL FUMARATE
     Indication: ASTHMA
     Dosage: 24 MCG, ONCE A DAY
  8. TIOTROPIUM BROMIDE [Concomitant]
     Active Substance: TIOTROPIUM BROMIDE
     Indication: ASTHMA
     Dosage: 5 MCG, ONCE A DAY
     Route: 065
  9. ERYTHROMYCIN. [Concomitant]
     Active Substance: ERYTHROMYCIN
     Indication: PRODUCT USED FOR UNKNOWN INDICATION
     Dosage: 500 MG THREE TIMES A WEEK
  10. MONTELUKAST SODIUM. [Suspect]
     Active Substance: MONTELUKAST SODIUM
     Indication: ASTHMA
     Dosage: 10 MG, ONCE A DAY
     Route: 048
  11. ALBUTEROL. [Suspect]
     Active Substance: ALBUTEROL
     Indication: ASTHMA
     Dosage: 4-8 PUFFS A DAY
  12. PREDNISONE. [Suspect]
     Active Substance: PREDNISONE
     Indication: RHINORRHOEA
  13. OMALIZUMAB. [Concomitant]
     Active Substance: OMALIZUMAB
     Indication: ASTHMA
     Dosage: 300 MG, PER 4 WEEKS

REACTIONS (3)
  - Sinusitis [Unknown]
  - Hypogammaglobulinaemia [Unknown]
  - Lung infection [Unknown]
